FAERS Safety Report 5971977-8 (Version None)
Quarter: 2008Q4

REPORT INFORMATION
  Report Type: 
  Country: None (occurrence: None)
  Receive Date: 20081201
  Receipt Date: 20081126
  Transmission Date: 20090506
  Serious: Yes (Hospitalization)
  Sender: FDA-Public Use
  Company Number: CH-BIOGENIDEC-2008BI031909

PATIENT
  Sex: Female

DRUGS (1)
  1. TYSABRI [Suspect]
     Indication: DRUG USE FOR UNKNOWN INDICATION

REACTIONS (5)
  - COGNITIVE DISORDER [None]
  - FATIGUE [None]
  - MULTIPLE SCLEROSIS RELAPSE [None]
  - PROGRESSIVE MULTIFOCAL LEUKOENCEPHALOPATHY [None]
  - SPEECH DISORDER [None]
